FAERS Safety Report 8968197 (Version 1)
Quarter: 2012Q4

REPORT INFORMATION
  Report Type: 
  Country: US (occurrence: US)
  Receive Date: 20121218
  Receipt Date: 20121218
  Transmission Date: 20130627
  Serious: Yes (Other)
  Sender: FDA-Public Use
  Company Number: US-JNJFOC-20121205938

PATIENT
  Sex: Female
  Weight: 49.9 kg

DRUGS (4)
  1. PANCREAZE [Suspect]
     Indication: PANCREATITIS CHRONIC
     Dosage: with each meal
     Route: 048
     Dates: start: 2012
  2. RELPAX [Concomitant]
     Indication: MIGRAINE
     Route: 065
  3. PREVACID [Concomitant]
     Indication: PANCREATITIS CHRONIC
     Route: 065
  4. ZOFRAN [Concomitant]
     Indication: NAUSEA
     Route: 065

REACTIONS (4)
  - Blood glucose decreased [Not Recovered/Not Resolved]
  - Abdominal pain upper [Not Recovered/Not Resolved]
  - Muscle spasms [Not Recovered/Not Resolved]
  - Nausea [Not Recovered/Not Resolved]
